FAERS Safety Report 4737845-4 (Version None)
Quarter: 2005Q3

REPORT INFORMATION
  Report Type: 
  Country: None (occurrence: None)
  Receive Date: 20050805
  Receipt Date: 20050726
  Transmission Date: 20060218
  Serious: Yes (Other)
  Sender: FDA-Public Use
  Company Number: 2005107503

PATIENT
  Age: 55 Year
  Sex: Female

DRUGS (8)
  1. NEURONTIN [Suspect]
     Indication: NERVE INJURY
     Dosage: 1800 MG (1800 MG, 1 IN 1 D), ORAL
     Route: 048
  2. PREMARIN [Concomitant]
  3. LIPITOR [Concomitant]
  4. CITRACAL (CALCIUM CITRATE) [Concomitant]
  5. VITAMIN D (VITAMIN D) [Concomitant]
  6. ACTONEL [Concomitant]
  7. MOVALIS (MELOXICAM) [Concomitant]
  8. DI-GESIC (DEXTROPROPOXYPHENE, PARACETAMOL) [Concomitant]

REACTIONS (2)
  - OSTEOPOROSIS [None]
  - SPINAL COMPRESSION FRACTURE [None]
